FAERS Safety Report 20602730 (Version 2)
Quarter: 2022Q1

REPORT INFORMATION
  Report Type: Spontaneous
  Country: CN (occurrence: CN)
  Receive Date: 20220316
  Receipt Date: 20220322
  Transmission Date: 20220423
  Serious: Yes (Death, Life-Threatening, Hospitalization, Other)
  Sender: FDA-Public Use
  Company Number: CN-009507513-2203CHN003183

PATIENT
  Age: 40 Year
  Sex: Male
  Weight: 45 kg

DRUGS (9)
  1. KEYTRUDA [Suspect]
     Active Substance: PEMBROLIZUMAB
     Indication: Tongue cancer recurrent
     Dosage: 200 MILLIGRAM
     Dates: start: 20200402, end: 20200402
  2. KEYTRUDA [Suspect]
     Active Substance: PEMBROLIZUMAB
     Indication: Metastases to lung
     Dosage: 200 MILLIGRAM
     Route: 042
     Dates: start: 20200424, end: 20200424
  3. KEYTRUDA [Suspect]
     Active Substance: PEMBROLIZUMAB
     Indication: Metastases to kidney
  4. CISPLATIN [Concomitant]
     Active Substance: CISPLATIN
     Indication: Tongue cancer recurrent
     Dosage: 111.8 MILLIGRAM
     Dates: start: 20200403, end: 20200403
  5. CISPLATIN [Concomitant]
     Active Substance: CISPLATIN
     Indication: Metastases to lung
  6. CISPLATIN [Concomitant]
     Active Substance: CISPLATIN
     Indication: Metastases to kidney
  7. FLUOROURACIL [Concomitant]
     Active Substance: FLUOROURACIL
     Indication: Tongue cancer recurrent
     Dosage: 1117.5 MILLIGRAM/D;  DAY1 TO DAY 5
     Dates: start: 20200403, end: 20200407
  8. FLUOROURACIL [Concomitant]
     Active Substance: FLUOROURACIL
     Indication: Metastases to lung
  9. FLUOROURACIL [Concomitant]
     Active Substance: FLUOROURACIL
     Indication: Metastases to kidney

REACTIONS (2)
  - Cutis laxa [Recovering/Resolving]
  - Malignant neoplasm progression [Fatal]

NARRATIVE: CASE EVENT DATE: 20200508
